FAERS Safety Report 24226731 (Version 2)
Quarter: 2025Q3

REPORT INFORMATION
  Report Type: Spontaneous
  Country: US (occurrence: US)
  Receive Date: 20240820
  Receipt Date: 20250819
  Transmission Date: 20251020
  Serious: No
  Sender: REGENERON
  Company Number: US-REGENERON PHARMACEUTICALS, INC.-2023-125624

PATIENT
  Sex: Female

DRUGS (3)
  1. PRALUENT [Suspect]
     Active Substance: ALIROCUMAB
     Indication: Hypercholesterolaemia
     Dosage: 150 MG, Q2W
     Route: 058
     Dates: start: 202307, end: 20231001
  2. ROSUVASTATIN CALCIUM [Concomitant]
     Active Substance: ROSUVASTATIN CALCIUM
     Indication: Product used for unknown indication
     Dosage: 10 MG, QD
     Route: 065
  3. QUNOL LIQUID COQ10 [Concomitant]
     Indication: Product used for unknown indication
     Dosage: 15 ML, QD
     Route: 065

REACTIONS (4)
  - Skin mass [Recovering/Resolving]
  - Neuroma [Recovering/Resolving]
  - Platelet count decreased [Recovering/Resolving]
  - Epistaxis [Recovered/Resolved]

NARRATIVE: CASE EVENT DATE: 20230701
